FAERS Safety Report 8250073-3 (Version None)
Quarter: 2012Q2

REPORT INFORMATION
  Report Type: 
  Country: None (occurrence: None)
  Receive Date: 20120402
  Receipt Date: 20120323
  Transmission Date: 20120825
  Serious: Yes (Other)
  Sender: FDA-Public Use
  Company Number: US-BAYER-2012-007483

PATIENT
  Age: 23 Year
  Sex: Female
  Weight: 90.703 kg

DRUGS (8)
  1. ZITHROMAX [Concomitant]
     Route: 048
  2. ZITHROMAX [Concomitant]
     Route: 048
  3. PHENERGAN HCL [Concomitant]
     Dosage: UNK
     Route: 048
  4. REGLAN [Concomitant]
     Route: 048
  5. MIRENA [Suspect]
     Indication: CONTRACEPTION
     Dosage: 20 ?G/D, CONT
     Route: 015
     Dates: start: 20111021
  6. PROMETHAZINE [Concomitant]
     Route: 048
  7. ZOFRAN [Concomitant]
     Route: 048
  8. PRENATAL [Concomitant]
     Route: 048

REACTIONS (4)
  - PREGNANCY WITH CONTRACEPTIVE DEVICE [None]
  - MEDICAL DEVICE COMPLICATION [None]
  - DEVICE DISLOCATION [None]
  - DEVICE EXPULSION [None]
